APPROVED DRUG PRODUCT: GUAIFENESIN AND PSEUDOEPHEDRINE HYDROCHLORIDE
Active Ingredient: GUAIFENESIN; PSEUDOEPHEDRINE HYDROCHLORIDE
Strength: 600MG;60MG
Dosage Form/Route: TABLET, EXTENDED RELEASE;ORAL
Application: A091071 | Product #001
Applicant: ACTAVIS LABORATORIES FL INC AN INDIRECT WHOLLY OWNED SUB OF TEVA PHARMACEUTICALS USA INC
Approved: May 27, 2015 | RLD: No | RS: No | Type: OTC